FAERS Safety Report 21153451 (Version 1)
Quarter: 2022Q3

REPORT INFORMATION
  Report Type: Spontaneous
  Country: DE (occurrence: DE)
  Receive Date: 20220731
  Receipt Date: 20220731
  Transmission Date: 20221027
  Serious: Yes (Hospitalization)
  Sender: FDA-Public Use
  Company Number: DE-PEI-202200124415

PATIENT
  Sex: Female

DRUGS (2)
  1. TYSABRI [Suspect]
     Active Substance: NATALIZUMAB
     Indication: Multiple sclerosis
     Dosage: 300 MG, ALLE 7 WOCHEN (IN DER SCHWANGERSCHAFT), AUSSERHALB DER SS ALLE 4 WOCHEN?300 MG, EVERY 7 WE..
     Route: 050
     Dates: start: 202006, end: 20220601
  2. TYSABRI [Suspect]
     Active Substance: NATALIZUMAB
     Dosage: 300 MG, ALLE 7 WOCHEN (IN DER SCHWANGERSCHAFT), AUSSERHALB DER SS ALLE 4 WOCHEN?300 MG, EVERY 7 WE..
     Route: 050
     Dates: start: 202006, end: 20220601

REACTIONS (2)
  - Premature baby [Recovered/Resolved]
  - Bradycardia [Recovered/Resolved]

NARRATIVE: CASE EVENT DATE: 20220705
